FAERS Safety Report 7426351-4 (Version None)
Quarter: 2011Q2

REPORT INFORMATION
  Report Type: 
  Country: None (occurrence: None)
  Receive Date: 20110420
  Receipt Date: 20110418
  Transmission Date: 20111010
  Serious: Yes (Other)
  Sender: FDA-Public Use
  Company Number: D0071064A

PATIENT
  Sex: Male

DRUGS (1)
  1. REVOLADE [Suspect]
     Route: 048

REACTIONS (2)
  - PLATELET DISORDER [None]
  - THROMBOCYTOPENIA [None]
